FAERS Safety Report 6880862-9 (Version None)
Quarter: 2010Q3

REPORT INFORMATION
  Report Type: 
  Country: None (occurrence: None)
  Receive Date: 20100728
  Receipt Date: 20100721
  Transmission Date: 20110219
  Serious: Yes (Hospitalization)
  Sender: FDA-Public Use
  Company Number: US-GILEAD-2010-0030561

PATIENT
  Age: 63 Year
  Sex: Female
  Weight: 89.892 kg

DRUGS (17)
  1. LETAIRIS [Suspect]
     Indication: PULMONARY ARTERIAL HYPERTENSION
     Route: 048
     Dates: start: 20100201
  2. LISINOPRIL [Concomitant]
  3. ASPIRIN [Concomitant]
  4. PLAQUENIL [Concomitant]
  5. HYDROCHLOROTHIAZIDE [Concomitant]
  6. FLEXERIL [Concomitant]
  7. TYLENOL W/ CODEINE [Concomitant]
  8. ACIDOPHILUS [Concomitant]
  9. DARVOCET-N 100 [Concomitant]
  10. TRIMETHOPRIM [Concomitant]
  11. CITALOPRAM HYDROBROMIDE [Concomitant]
  12. PRAVASTATIN [Concomitant]
  13. GLIMEPIRIDE [Concomitant]
  14. CARVEDILOL [Concomitant]
  15. LEVEMIR [Concomitant]
  16. KLOR-CON [Concomitant]
  17. OMEPRAZOLE [Concomitant]

REACTIONS (1)
  - CYSTITIS [None]
